FAERS Safety Report 8976742 (Version 4)
Quarter: 2013Q1

REPORT INFORMATION
  Report Type: Report from Study
  Country: US (occurrence: US)
  Receive Date: 20121220
  Receipt Date: 20130307
  Transmission Date: 20140127
  Serious: Yes (Death, Hospitalization, Other)
  Sender: FDA-Public Use
  Company Number: US-ABBOTT-12P-163-1021249-00

PATIENT
  Age: 69 Year
  Sex: Male

DRUGS (17)
  1. HUMIRA [Suspect]
     Indication: CROHN^S DISEASE
     Dates: start: 20121106
  2. NITROGLYCERIN [Concomitant]
     Indication: CHEST PAIN
  3. PANTOPRAZOLE [Concomitant]
     Indication: BARRETT^S OESOPHAGUS
  4. ONDANSETRON [Concomitant]
     Indication: NAUSEA
  5. IRON [Concomitant]
     Indication: ANAEMIA
  6. ISOSORBIDE MONONITRATE [Concomitant]
     Indication: ATRIAL FIBRILLATION
     Dosage: 30 MG DAILY
  7. DIGOXIN [Concomitant]
     Indication: ATRIAL FIBRILLATION
     Dosage: 0.25 MG DAILY
  8. FUROSEMIDE [Concomitant]
     Indication: OEDEMA PERIPHERAL
  9. ATENOLOL [Concomitant]
     Indication: CARDIAC DISORDER
  10. POTASSIUM CHLORIDE MAG [Concomitant]
     Indication: MINERAL SUPPLEMENTATION
  11. MIRTAZAPINE [Concomitant]
     Indication: INCREASED APPETITE
     Dosage: 30 MG DAILY
  12. MIRTAZAPINE [Concomitant]
     Indication: ANXIETY
  13. VITAMIN D NOS [Concomitant]
     Indication: PRODUCT USED FOR UNKNOWN INDICATION
     Dosage: 2000 UNITS DAILY
  14. CALCIUM [Concomitant]
     Indication: PRODUCT USED FOR UNKNOWN INDICATION
     Dosage: 600 MG DAILY
  15. BAYER ASPIRIN [Concomitant]
     Indication: PRODUCT USED FOR UNKNOWN INDICATION
  16. MULTIVITAMIN [Concomitant]
     Indication: PRODUCT USED FOR UNKNOWN INDICATION
     Dosage: DAILY
  17. ASPIRIN [Concomitant]
     Indication: PRODUCT USED FOR UNKNOWN INDICATION
     Dosage: 81 MG DAILY

REACTIONS (20)
  - Fluid overload [Fatal]
  - General physical health deterioration [Recovered/Resolved]
  - Asthenia [Recovered/Resolved]
  - Diarrhoea [Recovered/Resolved]
  - Fluid overload [Recovered/Resolved]
  - Wound secretion [Unknown]
  - Abasia [Unknown]
  - Vomiting [Unknown]
  - Hypotension [Unknown]
  - Blood albumin decreased [Unknown]
  - Clostridium difficile infection [Recovered/Resolved]
  - Toxicity to various agents [Recovered/Resolved]
  - International normalised ratio increased [Recovered/Resolved]
  - Meningioma [Unknown]
  - Bladder cancer [Not Recovered/Not Resolved]
  - Blood urine present [Unknown]
  - Oedema genital [Unknown]
  - Starvation [Unknown]
  - Malaise [Unknown]
  - Dehydration [Unknown]
